FAERS Safety Report 5716053-4 (Version None)
Quarter: 2008Q2

REPORT INFORMATION
  Report Type: 
  Country: None (occurrence: None)
  Receive Date: 20080424
  Receipt Date: 20080409
  Transmission Date: 20081010
  Serious: Yes (Hospitalization)
  Sender: FDA-Public Use
  Company Number: GB-GENENTECH-259429

PATIENT
  Sex: Female
  Weight: 123 kg

DRUGS (3)
  1. BEVACIZUMAB [Suspect]
     Indication: OVARIAN CANCER
     Dosage: 850 MG, UNK
     Route: 042
     Dates: start: 20080204
  2. PACLITAXEL [Suspect]
     Indication: OVARIAN CANCER
     Dosage: 350 MG, UNK
     Route: 042
     Dates: start: 20080204
  3. CARBOPLATIN [Suspect]
     Indication: OVARIAN CANCER
     Dosage: 800 MG, UNK
     Route: 042
     Dates: start: 20080204

REACTIONS (2)
  - BODY TEMPERATURE INCREASED [None]
  - PAIN IN EXTREMITY [None]
